FAERS Safety Report 7951905-6 (Version None)
Quarter: 2011Q4

REPORT INFORMATION
  Report Type: 
  Country: None (occurrence: None)
  Receive Date: 20111130
  Receipt Date: 20111130
  Transmission Date: 20120403
  Serious: No
  Sender: FDA-Public Use
  Company Number: None

PATIENT
  Age: 19 Year
  Sex: Male

DRUGS (1)
  1. PEGASYS [Suspect]
     Indication: MULTIPLE SCLEROSIS
     Dosage: 135 MCG SQ
     Route: 058
     Dates: start: 20111101

REACTIONS (1)
  - HYPOAESTHESIA [None]
